FAERS Safety Report 6999721-6 (Version None)
Quarter: 2010Q3

REPORT INFORMATION
  Report Type: 
  Country: None (occurrence: None)
  Receive Date: 20100920
  Receipt Date: 20100217
  Transmission Date: 20110219
  Serious: Yes (Other)
  Sender: FDA-Public Use
  Company Number: US-ASTRAZENECA-2009UW20948

PATIENT
  Sex: Female

DRUGS (16)
  1. SEROQUEL [Suspect]
     Route: 048
     Dates: start: 20070131
  2. LEXAPRO [Concomitant]
     Dates: start: 20070131
  3. LEXAPRO [Concomitant]
     Dates: start: 20070131
  4. CLONAZEPAM [Concomitant]
     Dates: start: 20070202
  5. CLONAZEPAM [Concomitant]
     Dates: start: 20070131
  6. PROVIGIL [Concomitant]
     Dates: start: 20070207
  7. PROVIGIL [Concomitant]
     Dates: start: 20070131
  8. ABILIFY [Concomitant]
     Dates: start: 20070207
  9. ABILIFY [Concomitant]
     Dates: start: 20070131
  10. AMBIEN [Concomitant]
     Dates: start: 20070215
  11. AMBIEN [Concomitant]
     Dates: start: 20070131
  12. FLEXTRA-DS [Concomitant]
     Dosage: 500/50
     Dates: start: 20070215
  13. FLEXTRA-DS [Concomitant]
     Dates: start: 20070131
  14. TRIAMTERENE/HCT [Concomitant]
     Dosage: TRIAMTERENE/HCT-37.5/25
     Dates: start: 20070215
  15. CLONIDINE [Concomitant]
     Dates: start: 20070215
  16. TRAMADOL HCL [Concomitant]
     Dates: start: 20070315

REACTIONS (3)
  - DIABETES MELLITUS [None]
  - KETOACIDOSIS [None]
  - PANCREATITIS [None]
